FAERS Safety Report 6219608-6 (Version None)
Quarter: 2009Q2

REPORT INFORMATION
  Report Type: 
  Country: None (occurrence: None)
  Receive Date: 20090609
  Receipt Date: 20090602
  Transmission Date: 20091009
  Serious: Yes (Death, Other)
  Sender: FDA-Public Use
  Company Number: PL-TEVA-196946ISR

PATIENT
  Age: 75 Year
  Sex: Male

DRUGS (4)
  1. CISPLATIN [Suspect]
  2. FOLINIC ACID [Suspect]
  3. FLUOROURACIL [Suspect]
  4. EPIRUBICIN [Suspect]

REACTIONS (1)
  - ATRIAL FIBRILLATION [None]
